FAERS Safety Report 4646900-9 (Version None)
Quarter: 2005Q2

REPORT INFORMATION
  Report Type: 
  Country: None (occurrence: None)
  Receive Date: 20050427
  Receipt Date: 20050419
  Transmission Date: 20051028
  Serious: Yes (Life-Threatening, Hospitalization)
  Sender: FDA-Public Use
  Company Number: FI-MERCK-0504FIN00007

PATIENT
  Age: 73 Year
  Sex: Female

DRUGS (6)
  1. FOSAMAX [Suspect]
     Indication: OSTEOPOROSIS
     Route: 048
     Dates: start: 19970701, end: 20050201
  2. FOSAMAX [Suspect]
     Route: 048
     Dates: start: 20050301, end: 20050310
  3. ENOXAPARIN SODIUM [Concomitant]
     Indication: THROMBOSIS PROPHYLAXIS
     Route: 058
     Dates: start: 20050216, end: 20050309
  4. TRIMETHOPRIM [Concomitant]
     Indication: PROPHYLAXIS
     Route: 048
     Dates: start: 20050219, end: 20050309
  5. ANALGESIC OR ANESTHETIC (UNSPECIFIED) [Concomitant]
     Indication: PAIN
     Route: 065
     Dates: start: 20050201
  6. IRON (UNSPECIFIED) [Concomitant]
     Indication: ANAEMIA
     Route: 048
     Dates: start: 20050224, end: 20050314

REACTIONS (3)
  - DUODENAL ULCER [None]
  - GASTRIC ULCER HAEMORRHAGE [None]
  - GASTRITIS [None]
